FAERS Safety Report 18403224 (Version 1)
Quarter: 2020Q4

REPORT INFORMATION
  Report Type: Spontaneous
  Country: PT (occurrence: PT)
  Receive Date: 20201020
  Receipt Date: 20201020
  Transmission Date: 20210114
  Serious: Yes (Hospitalization, Other)
  Sender: FDA-Public Use
  Company Number: PT-AUROBINDO-AUR-APL-2018-039848

PATIENT
  Age: 16 Year
  Sex: Female

DRUGS (4)
  1. CARBAMAZEPINE TABLETS [Suspect]
     Active Substance: CARBAMAZEPINE
     Dosage: 200 MILLIGRAM (28 OF)
     Route: 048
  2. CARBAMAZEPINE TABLETS [Suspect]
     Active Substance: CARBAMAZEPINE
     Dosage: 400 MILLIGRAM (27 PROLONGED RELEASE TABLETS OF 400 MG)
     Route: 048
  3. VALPROIC ACID PROLONGED RELEASE TABLETS [Suspect]
     Active Substance: VALPROIC ACID
     Indication: PRODUCT USED FOR UNKNOWN INDICATION
     Dosage: 29 DOSAGE FORM (29 PROLONGED RELEASE TABLETS OF 500 MG)
     Route: 065
  4. CARBAMAZEPINE TABLETS [Suspect]
     Active Substance: CARBAMAZEPINE
     Indication: PRODUCT USED FOR UNKNOWN INDICATION
     Dosage: 200 MILLIGRAM
     Route: 048

REACTIONS (2)
  - Coma [Recovered/Resolved]
  - Intentional overdose [Recovered/Resolved]
